FAERS Safety Report 14327231 (Version 2)
Quarter: 2018Q1

REPORT INFORMATION
  Report Type: Report from Study
  Country: DE (occurrence: DE)
  Receive Date: 20171227
  Receipt Date: 20180117
  Transmission Date: 20180509
  Serious: Yes (Hospitalization)
  Sender: FDA-Public Use
  Company Number: DE-ROCHE-2045457

PATIENT
  Age: 70 Year
  Sex: Male
  Weight: 73 kg

DRUGS (3)
  1. OBINUTUZUMAB. [Suspect]
     Active Substance: OBINUTUZUMAB
     Indication: CHRONIC LYMPHOCYTIC LEUKAEMIA
     Dosage: CYCLES 2-6: 1000 MG, D1, Q28D?MOST RECENT DOSE PRIOR TO SAE ON 15/DEC/2017
     Route: 042
     Dates: start: 20171108
  2. VENETOCLAX. [Suspect]
     Active Substance: VENETOCLAX
     Indication: CHRONIC LYMPHOCYTIC LEUKAEMIA
     Dosage: CYCLE 2: 50 MG (1 TABL. AT 50 MG), D1-7; 100 MG (1 TABL. AT 100 MG), D8-14; 200 MG (2 TABL. AT 100 M
     Route: 048
     Dates: start: 20171129
  3. IBRUTINIB [Suspect]
     Active Substance: IBRUTINIB
     Indication: CHRONIC LYMPHOCYTIC LEUKAEMIA
     Dosage: CYCLES 1-12: 420 MG, D1-28, Q28D?MOST RECENT DOSE PRIOR TO SAE ON 17/DEC/2017
     Route: 048
     Dates: start: 20171108

REACTIONS (1)
  - Urinary tract infection [Recovered/Resolved]

NARRATIVE: CASE EVENT DATE: 20171217
